FAERS Safety Report 7917406-6 (Version None)
Quarter: 2011Q4

REPORT INFORMATION
  Report Type: 
  Country: None (occurrence: None)
  Receive Date: 20111116
  Receipt Date: 20111102
  Transmission Date: 20120403
  Serious: Yes (Hospitalization)
  Sender: FDA-Public Use
  Company Number: FR-PFIZER INC-2011270392

PATIENT
  Age: 60 Year
  Sex: Male
  Weight: 85 kg

DRUGS (8)
  1. LIPUR [Concomitant]
     Dosage: UNKNOWN
     Route: 048
  2. CEFPODOXIME PROXETIL [Concomitant]
  3. INDAPAMIDE [Suspect]
     Dosage: 1.5 MG, 1X/DAY
     Route: 048
     Dates: end: 20110928
  4. AMLODIPINE BESYLATE AND OLMESARTAN MEDOXOMIL [Suspect]
     Dosage: 1 DF, 1X/DAY
     Route: 048
     Dates: end: 20110928
  5. CIPROFLOXACIN [Concomitant]
  6. IBUPROFEN (ADVIL) [Suspect]
     Dosage: UNK DOSE FOR 3 DAYS
     Route: 048
     Dates: start: 20110919, end: 20110924
  7. GLUCOPHAGE [Concomitant]
     Dosage: 1000 MG, UNK
     Route: 048
  8. NEBIVOLOL HCL [Concomitant]
     Dosage: UNKNOWN
     Route: 048

REACTIONS (2)
  - LIPASE INCREASED [None]
  - RENAL FAILURE ACUTE [None]
